FAERS Safety Report 5731525-4 (Version None)
Quarter: 2008Q2

REPORT INFORMATION
  Report Type: 
  Country: None (occurrence: None)
  Receive Date: 20080506
  Receipt Date: 20080506
  Transmission Date: 20081010
  Serious: Yes (Life-Threatening, Other)
  Sender: FDA-Public Use
  Company Number: None

PATIENT
  Age: 65 Year
  Sex: Female
  Weight: 77.1115 kg

DRUGS (1)
  1. DIGITEK 0.25MG ACTAVIS GROUP [Suspect]
     Indication: MITRAL VALVE PROLAPSE
     Dosage: 0.25MG ONE A DAY
     Dates: start: 20060101, end: 20080503

REACTIONS (4)
  - ASTHENIA [None]
  - EXTRASYSTOLES [None]
  - HEART RATE IRREGULAR [None]
  - VOMITING [None]
